FAERS Safety Report 5824605-6 (Version None)
Quarter: 2008Q3

REPORT INFORMATION
  Report Type: 
  Country: None (occurrence: None)
  Receive Date: 20080728
  Receipt Date: 20080714
  Transmission Date: 20090109
  Serious: Yes (Hospitalization, Other)
  Sender: FDA-Public Use
  Company Number: US-ELI_LILLY_AND_COMPANY-US200807002638

PATIENT
  Age: 82 Year
  Sex: Female

DRUGS (2)
  1. FORTEO [Suspect]
     Dates: start: 20070827, end: 20080701
  2. ACTONEL [Concomitant]

REACTIONS (5)
  - BLOOD PRESSURE DECREASED [None]
  - DIARRHOEA [None]
  - FATIGUE [None]
  - HAEMORRHAGE [None]
  - STOMATITIS [None]
